FAERS Safety Report 16849857 (Version 1)
Quarter: 2019Q3

REPORT INFORMATION
  Report Type: Spontaneous
  Country: US (occurrence: US)
  Receive Date: 20190803
  Receipt Date: 20190803
  Transmission Date: 20191005
  Serious: No
  Sender: FDA-Public Use
  Company Number: None

PATIENT
  Sex: Male

DRUGS (1)
  1. HUMIRA [Suspect]
     Active Substance: ADALIMUMAB
     Indication: HIDRADENITIS
     Dosage: ?          OTHER FREQUENCY:EVER;?
     Route: 058
     Dates: start: 20190425

REACTIONS (3)
  - Diarrhoea [None]
  - Peripheral swelling [None]
  - Treatment noncompliance [None]
